FAERS Safety Report 7509692-1 (Version None)
Quarter: 2011Q2

REPORT INFORMATION
  Report Type: 
  Country: None (occurrence: None)
  Receive Date: 20110527
  Receipt Date: 20110524
  Transmission Date: 20111010
  Serious: Yes (Other)
  Sender: FDA-Public Use
  Company Number: US-PFIZER INC-2011112544

PATIENT
  Sex: Female
  Weight: 68.027 kg

DRUGS (3)
  1. CELEXA [Concomitant]
     Dosage: UNK
  2. AMBIEN [Concomitant]
     Dosage: UNK
  3. XANAX [Suspect]
     Indication: ANXIETY
     Dosage: UNK

REACTIONS (4)
  - DYSPHAGIA [None]
  - ANAEMIA [None]
  - NAUSEA [None]
  - RED BLOOD CELL COUNT DECREASED [None]
